FAERS Safety Report 8641721 (Version 4)
Quarter: 2013Q4

REPORT INFORMATION
  Report Type: Report from Study
  Country: JP (occurrence: JP)
  Receive Date: 20120628
  Receipt Date: 20131120
  Transmission Date: 20140711
  Serious: Yes (Life-Threatening, Hospitalization)
  Sender: FDA-Public Use
  Company Number: JP-EISAI INC-E7389-02585-CLI-JP

PATIENT
  Age: 69 Year
  Sex: Male
  Weight: 60 kg

DRUGS (26)
  1. E7389 (BOLD) [Suspect]
     Indication: NON-SMALL CELL LUNG CANCER
     Route: 041
     Dates: start: 20120321, end: 20120530
  2. DEXART [Suspect]
     Indication: ANTIEMETIC SUPPORTIVE CARE
     Route: 041
     Dates: start: 20120321, end: 20120530
  3. ADONA [Suspect]
     Indication: HAEMOPTYSIS
     Route: 048
     Dates: start: 20110706, end: 20120627
  4. ADONA [Suspect]
     Route: 041
     Dates: start: 20120628, end: 20120703
  5. ADONA [Suspect]
     Route: 048
     Dates: start: 20120704, end: 20120704
  6. ADONA [Suspect]
     Route: 041
     Dates: start: 20120704
  7. TRANSAMIN [Suspect]
     Indication: HAEMOPTYSIS
     Route: 048
     Dates: start: 20110706, end: 20120627
  8. TRANSAMIN [Suspect]
     Dosage: UNKNOWN
     Route: 041
     Dates: start: 20120628, end: 20120703
  9. TRANSAMIN [Suspect]
     Dosage: UNKNOWN
     Route: 048
     Dates: start: 20120704, end: 20120704
  10. TRANSAMIN [Suspect]
     Dosage: UNKNOWN
     Route: 041
     Dates: start: 20120704
  11. VALTREX [Suspect]
     Indication: HERPES ZOSTER
     Route: 048
     Dates: start: 20120612
  12. CEROCRAL [Suspect]
     Indication: CEREBRAL INFARCTION
     Route: 048
     Dates: start: 20120615, end: 20120628
  13. MAGMITT [Concomitant]
     Indication: CONSTIPATION
     Route: 048
     Dates: start: 20110408
  14. TRAMACET [Concomitant]
     Indication: NON-SMALL CELL LUNG CANCER
     Route: 048
     Dates: start: 20120328
  15. GASTER D [Concomitant]
     Indication: GASTRITIS PROPHYLAXIS
     Route: 048
     Dates: start: 20120203
  16. HUSTAZOL [Concomitant]
     Indication: COUGH
     Route: 048
     Dates: start: 20120529
  17. NAIXAN [Concomitant]
     Indication: TUMOUR ASSOCIATED FEVER
     Route: 048
     Dates: start: 20120203
  18. ARSENA-A [Concomitant]
     Indication: HERPES ZOSTER
     Dates: start: 20120612
  19. SELTOUCH [Concomitant]
     Indication: SPINAL OSTEOARTHRITIS
     Dates: start: 20110806
  20. SELTOUCH [Concomitant]
     Indication: COMPRESSION FRACTURE
  21. STICKZENOL [Concomitant]
     Indication: SPINAL OSTEOARTHRITIS
     Dates: start: 20120417
  22. STICKZENOL [Concomitant]
     Indication: COMPRESSION FRACTURE
  23. POSTERISAN [Concomitant]
     Indication: HAEMORRHOIDS
     Dates: start: 20120524
  24. POSTERISAN [Concomitant]
     Indication: COMPRESSION FRACTURE
  25. GENTACIN [Concomitant]
     Indication: HERPES ZOSTER
     Dates: start: 20120417
  26. GENTACIN [Concomitant]
     Indication: COMPRESSION FRACTURE

REACTIONS (2)
  - Cerebral infarction [Not Recovered/Not Resolved]
  - Haemoptysis [Not Recovered/Not Resolved]
